FAERS Safety Report 8835306 (Version 4)
Quarter: 2013Q1

REPORT INFORMATION
  Report Type: Spontaneous
  Country: US (occurrence: US)
  Receive Date: 20121011
  Receipt Date: 20130117
  Transmission Date: 20140127
  Serious: Yes (Hospitalization, Other)
  Sender: FDA-Public Use
  Company Number: US-ASTRAZENECA-2012SE76839

PATIENT
  Age: 48 Year
  Sex: Female
  Weight: 62.1 kg

DRUGS (33)
  1. SEROQUEL [Suspect]
     Indication: DEPRESSION
     Route: 048
  2. SEROQUEL [Suspect]
     Indication: SLEEP DISORDER
     Route: 048
  3. SEROQUEL [Suspect]
     Indication: BIPOLAR DISORDER
     Route: 048
  4. SEROQUEL [Suspect]
     Indication: DEPRESSION
     Dosage: FOUR TIMES A DAY
     Route: 048
     Dates: start: 201208, end: 201208
  5. SEROQUEL [Suspect]
     Indication: SLEEP DISORDER
     Dosage: FOUR TIMES A DAY
     Route: 048
     Dates: start: 201208, end: 201208
  6. SEROQUEL [Suspect]
     Indication: BIPOLAR DISORDER
     Dosage: FOUR TIMES A DAY
     Route: 048
     Dates: start: 201208, end: 201208
  7. SEROQUEL [Suspect]
     Indication: DEPRESSION
     Route: 048
     Dates: start: 201208, end: 201208
  8. SEROQUEL [Suspect]
     Indication: SLEEP DISORDER
     Route: 048
     Dates: start: 201208, end: 201208
  9. SEROQUEL [Suspect]
     Indication: BIPOLAR DISORDER
     Route: 048
     Dates: start: 201208, end: 201208
  10. NEXIUM [Suspect]
     Indication: GASTROOESOPHAGEAL REFLUX DISEASE
     Route: 048
     Dates: start: 201209
  11. PRILOSEC [Suspect]
     Indication: GASTROOESOPHAGEAL REFLUX DISEASE
     Route: 048
     Dates: start: 201208, end: 201209
  12. KLONOPIN [Concomitant]
     Indication: ANXIETY
     Route: 048
     Dates: start: 201208, end: 201208
  13. KLONOPIN [Concomitant]
     Indication: ANXIETY
     Route: 048
     Dates: start: 201208
  14. LITHIUM [Concomitant]
     Indication: BIPOLAR DISORDER
     Route: 048
     Dates: start: 201208
  15. LIDODERM PATCH [Concomitant]
     Indication: MUSCULOSKELETAL PAIN
     Dosage: ONE PATCH ON 12 HOURS AND OFF 12 HOURS
     Dates: start: 201208
  16. LIDODERM PATCH [Concomitant]
     Indication: NECK PAIN
     Dosage: ONE PATCH ON 12 HOURS AND OFF 12 HOURS
     Dates: start: 201208
  17. VITAMIN C [Concomitant]
     Dates: start: 201208
  18. ATARAX [Concomitant]
     Indication: ANXIETY
     Dates: start: 201208
  19. BENTYL [Concomitant]
     Indication: SLEEP DISORDER
     Route: 048
     Dates: start: 201208
  20. BENTYL [Concomitant]
     Indication: IRRITABLE BOWEL SYNDROME
     Route: 048
     Dates: start: 201208
  21. BENTYL [Concomitant]
     Indication: SLEEP DISORDER
     Route: 048
     Dates: start: 201208
  22. BENTYL [Concomitant]
     Indication: IRRITABLE BOWEL SYNDROME
     Route: 048
     Dates: start: 201208
  23. CATAPRES [Concomitant]
     Indication: HYPERTENSION
     Dates: start: 201208
  24. TYLENOL [Concomitant]
     Indication: HEADACHE
     Dates: start: 201208
  25. IBUPROFEN [Concomitant]
     Indication: BACK DISORDER
     Dates: start: 201208
  26. PHENERGAN [Concomitant]
     Indication: NAUSEA
     Route: 048
     Dates: start: 20121012
  27. CELEXA [Concomitant]
     Route: 048
     Dates: start: 201208
  28. CLARITIN [Concomitant]
     Indication: SINUSITIS
     Route: 048
     Dates: start: 201208
  29. DESYREL [Concomitant]
     Indication: SLEEP DISORDER
     Route: 048
     Dates: start: 201208
  30. FERGON [Concomitant]
     Indication: ANAEMIA
     Route: 048
     Dates: start: 201208
  31. FLEXERIL [Concomitant]
     Indication: FIBROMYALGIA
     Route: 048
     Dates: start: 20120813, end: 20120904
  32. PERICOLACE [Concomitant]
     Dosage: TWO TIMES A DAY
     Route: 048
     Dates: start: 201208
  33. FISH OIL/OMEGA3 [Concomitant]
     Route: 048
     Dates: start: 201208

REACTIONS (14)
  - Suicidal ideation [Unknown]
  - Depression [Unknown]
  - Crying [Unknown]
  - Anaemia [Unknown]
  - Hypertension [Unknown]
  - Gastrooesophageal reflux disease [Unknown]
  - Nausea [Unknown]
  - Headache [Unknown]
  - Abdominal discomfort [Unknown]
  - Dyspepsia [Unknown]
  - Drug dose omission [Unknown]
  - Intentional drug misuse [Unknown]
  - Off label use [Unknown]
  - Off label use [Unknown]
